FAERS Safety Report 5620320-2 (Version None)
Quarter: 2008Q1

REPORT INFORMATION
  Report Type: 
  Country: None (occurrence: None)
  Receive Date: 20080208
  Receipt Date: 20080129
  Transmission Date: 20080703
  Serious: Yes (Death, Hospitalization)
  Sender: FDA-Public Use
  Company Number: CH-WYE-G00964108

PATIENT
  Age: 72 Year
  Sex: Male
  Weight: 75 kg

DRUGS (10)
  1. EFFEXOR [Suspect]
     Indication: DEPRESSION
     Route: 048
     Dates: end: 20080106
  2. SEROQUEL [Suspect]
     Indication: DELUSIONAL DISORDER, UNSPECIFIED TYPE
     Dosage: 25-100MG PER DAY
     Route: 048
     Dates: start: 20071227, end: 20080106
  3. NOZINAN [Suspect]
     Indication: DELUSIONAL DISORDER, UNSPECIFIED TYPE
     Route: 048
     Dates: end: 20080106
  4. ACETYLCYSTEINE SODIUM [Concomitant]
     Route: 048
     Dates: end: 20080108
  5. LORAZEPAM [Concomitant]
     Route: 048
     Dates: end: 20080106
  6. TORSEMIDE [Concomitant]
     Route: 048
     Dates: end: 20080108
  7. COVERSUM [Concomitant]
     Route: 048
     Dates: end: 20080107
  8. FOLIC ACID [Concomitant]
     Route: 048
     Dates: end: 20080108
  9. QUILONORM [Suspect]
     Indication: DELUSIONAL DISORDER, UNSPECIFIED TYPE
     Route: 048
  10. ZOLPIDEM [Concomitant]
     Indication: SLEEP DISORDER
     Route: 048
     Dates: end: 20080107

REACTIONS (7)
  - ATRIAL FIBRILLATION [None]
  - CARDIOGENIC SHOCK [None]
  - CONDITION AGGRAVATED [None]
  - LUNG INFILTRATION [None]
  - RENAL FAILURE CHRONIC [None]
  - SEROTONIN SYNDROME [None]
  - SHOCK [None]
